FAERS Safety Report 12395419 (Version 2)
Quarter: 2016Q2

REPORT INFORMATION
  Report Type: Report from Study
  Country: AU (occurrence: AU)
  Receive Date: 20160523
  Receipt Date: 20160603
  Transmission Date: 20160815
  Serious: Yes (Hospitalization)
  Sender: FDA-Public Use
  Company Number: AU-REGENERON PHARMACEUTICALS, INC.-2016-17407

PATIENT

DRUGS (9)
  1. ASPIRIN                            /00002701/ [Concomitant]
     Active Substance: ASPIRIN
     Indication: OSTEOPOROSIS
     Dosage: DAILY DOSE 100 MG
     Route: 048
     Dates: start: 20130607
  2. MICARDIS [Concomitant]
     Active Substance: TELMISARTAN
     Indication: HYPERTENSION
     Dosage: DAILY DOSE 80 MG
     Route: 048
     Dates: start: 20140322
  3. RABEPRAZOLE [Concomitant]
     Active Substance: RABEPRAZOLE
     Indication: GASTROOESOPHAGEAL REFLUX DISEASE
     Dosage: DAILY DOSE 20 MG
     Route: 048
     Dates: start: 20130607
  4. ASPIRIN. [Concomitant]
     Active Substance: ASPIRIN
     Indication: OSTEOPOROSIS
     Dosage: DAILY DOSE 100 MG
     Route: 048
     Dates: start: 20130607
  5. EYLEA [Suspect]
     Active Substance: AFLIBERCEPT
     Indication: POLYPOIDAL CHOROIDAL VASCULOPATHY
     Dosage: 2 MG MILLIGRAM(S), UNK
     Route: 031
     Dates: start: 20141127
  6. METFORMIN [Concomitant]
     Active Substance: METFORMIN HYDROCHLORIDE
     Indication: DIABETES MELLITUS
     Dosage: DAILY DOSE 510 MG
     Route: 048
     Dates: start: 20140918
  7. BLINDED PLACEBO (SHAM TREATMENT) [Suspect]
     Active Substance: INVESTIGATIONAL PRODUCT
     Indication: POLYPOIDAL CHOROIDAL VASCULOPATHY
  8. VISUDYNE [Suspect]
     Active Substance: VERTEPORFIN
     Indication: POLYPOIDAL CHOROIDAL VASCULOPATHY
  9. VISUDYNE [Suspect]
     Active Substance: VERTEPORFIN
     Indication: POLYPOIDAL CHOROIDAL VASCULOPATHY

REACTIONS (2)
  - Ear infection [Recovered/Resolved]
  - Fall [Recovered/Resolved]

NARRATIVE: CASE EVENT DATE: 20160301
